FAERS Safety Report 23134258 (Version 1)
Quarter: 2023Q4

REPORT INFORMATION
  Report Type: Spontaneous
  Country: NL (occurrence: NL)
  Receive Date: 20231101
  Receipt Date: 20231101
  Transmission Date: 20240110
  Serious: Yes (Hospitalization)
  Sender: FDA-Public Use
  Company Number: NL-PFM-2023-06132

PATIENT
  Age: 74 Year
  Sex: Male

DRUGS (5)
  1. BRAFTOVI [Suspect]
     Active Substance: ENCORAFENIB
     Indication: Colorectal cancer metastatic
     Dosage: 300 MG, QD (1/DAY) (FIRST TREATMENT)
     Route: 048
     Dates: start: 20230830
  2. BRAFTOVI [Suspect]
     Active Substance: ENCORAFENIB
     Dosage: 300 MG, QD (1/DAY) (SECOND TREATMENT)
     Route: 048
     Dates: start: 20230926, end: 20231012
  3. BRAFTOVI [Suspect]
     Active Substance: ENCORAFENIB
     Dosage: 225 MG, PER DAY
     Route: 048
     Dates: start: 20231019, end: 20231021
  4. CETUXIMAB [Suspect]
     Active Substance: CETUXIMAB
     Indication: Colorectal cancer metastatic
     Dosage: UNK, FIRST TREATMENT
     Route: 042
     Dates: start: 20230830
  5. CETUXIMAB [Suspect]
     Active Substance: CETUXIMAB
     Dosage: UNK, SECOND TREATMENT
     Route: 042
     Dates: start: 20230926

REACTIONS (2)
  - Chills [Recovered/Resolved]
  - Pyrexia [Recovered/Resolved]

NARRATIVE: CASE EVENT DATE: 20231012
